FAERS Safety Report 5159859-5 (Version None)
Quarter: 2006Q4

REPORT INFORMATION
  Report Type: 
  Country: None (occurrence: None)
  Receive Date: 20061129
  Receipt Date: 20060228
  Transmission Date: 20070319
  Serious: Yes (Other)
  Sender: FDA-Public Use
  Company Number: US-GLAXOSMITHKLINE-A0595546A

PATIENT
  Age: 23 Year
  Sex: Female

DRUGS (3)
  1. WELLBUTRIN [Suspect]
     Indication: DEPRESSION
     Dosage: 150MG PER DAY
     Route: 048
     Dates: start: 20060215, end: 20060218
  2. KLONOPIN [Concomitant]
  3. BIRTH CONTROL [Concomitant]

REACTIONS (1)
  - CONVULSION [None]
